FAERS Safety Report 9197732 (Version 3)
Quarter: 2013Q2

REPORT INFORMATION
  Report Type: Report from Study
  Country: DE (occurrence: DE)
  Receive Date: 20130328
  Receipt Date: 20130517
  Transmission Date: 20140414
  Serious: Yes (Hospitalization)
  Sender: FDA-Public Use
  Company Number: DE-PFIZER INC-2013094283

PATIENT
  Age: 53 Year
  Sex: Male

DRUGS (3)
  1. CYTARABINE [Suspect]
     Indication: ACUTE MYELOID LEUKAEMIA
     Dosage: 6000 MG,DAILY
     Dates: start: 20130308, end: 20130310
  2. ATRA [Concomitant]
     Indication: ACUTE MYELOID LEUKAEMIA
     Dosage: 30 MG, DAILY
     Dates: start: 20130311, end: 20130320
  3. PEGFILGRASTIM [Concomitant]
     Indication: ACUTE MYELOID LEUKAEMIA
     Dosage: 6 MG, DAILY
     Dates: start: 20130317, end: 20130317

REACTIONS (1)
  - Pancytopenia [Recovered/Resolved]
